FAERS Safety Report 5363086-6 (Version None)
Quarter: 2007Q2

REPORT INFORMATION
  Report Type: 
  Country: None (occurrence: None)
  Receive Date: 20070615
  Receipt Date: 20070531
  Transmission Date: 20071010
  Serious: Yes (Hospitalization)
  Sender: FDA-Public Use
  Company Number: 2006JP005064

PATIENT
  Age: 53 Year
  Sex: Female
  Weight: 70.2 kg

DRUGS (12)
  1. TACROLIMUS BLINDED(CODE NOT BROKEN) CAPSULE [Suspect]
     Indication: RHEUMATOID ARTHRITIS
     Dosage: 3 MG, /D, ORAL
     Route: 048
     Dates: start: 20061012, end: 20070121
  2. METHOTREXATE [Concomitant]
  3. LOXONIN (LOXOPROFEN SODIUM) [Concomitant]
  4. PROTECADIN (LAFUTIDINE) [Concomitant]
  5. FOSAMAC (ALENDRONATE SODIUM) [Concomitant]
  6. MEDROL [Concomitant]
  7. FOLIC ACID [Concomitant]
  8. MERCAZOLE (THIAMAZOLE) [Concomitant]
  9. DIOVAN [Concomitant]
  10. FERROMIA (FERROUS CITRATE) [Concomitant]
  11. SELBEX (TEPRENONE) [Concomitant]
  12. AMLODIPINE BESYLATE [Concomitant]

REACTIONS (4)
  - NO THERAPEUTIC RESPONSE [None]
  - PURULENCE [None]
  - PYODERMA GANGRENOSUM [None]
  - SKIN INJURY [None]
